FAERS Safety Report 10266221 (Version 1)
Quarter: 2014Q2

REPORT INFORMATION
  Report Type: Spontaneous
  Country: US (occurrence: US)
  Receive Date: 20140627
  Receipt Date: 20140627
  Transmission Date: 20141212
  Serious: No
  Sender: FDA-Public Use
  Company Number: US-PFIZER INC-2014174624

PATIENT
  Age: 67 Year
  Sex: Female
  Weight: 63.49 kg

DRUGS (3)
  1. CELEBREX [Suspect]
     Indication: INFLAMMATION
     Dosage: UNK
     Dates: end: 20140306
  2. CELEBREX [Suspect]
     Indication: PAIN
  3. CELEBREX [Suspect]
     Indication: ARTHRITIS

REACTIONS (2)
  - Drug ineffective [Unknown]
  - Fluid retention [Unknown]
